FAERS Safety Report 20409871 (Version 4)
Quarter: 2022Q1

REPORT INFORMATION
  Report Type: Spontaneous
  Country: US (occurrence: US)
  Receive Date: 20220201
  Receipt Date: 20220215
  Transmission Date: 20220423
  Serious: No
  Sender: FDA-Public Use
  Company Number: US-BEH-2022140819

PATIENT
  Age: 59 Year
  Sex: Female

DRUGS (17)
  1. HIZENTRA [Suspect]
     Active Substance: HUMAN IMMUNOGLOBULIN G
     Indication: Asthma
     Dosage: 12 GRAM, QW
     Route: 058
     Dates: start: 20210209
  2. HIZENTRA [Suspect]
     Active Substance: HUMAN IMMUNOGLOBULIN G
     Indication: Immunodeficiency common variable
     Dosage: UNK
     Route: 058
     Dates: start: 20210209
  3. HIZENTRA [Suspect]
     Active Substance: HUMAN IMMUNOGLOBULIN G
     Dosage: 60 MILLILITER, QW
     Route: 058
     Dates: start: 20210209
  4. PREDNISONE [Suspect]
     Active Substance: PREDNISONE
     Indication: Product used for unknown indication
     Dosage: UNK, QD
     Route: 065
  5. ACYCLOVIR [Concomitant]
     Active Substance: ACYCLOVIR
  6. ALBUTEROL SULFATE [Concomitant]
     Active Substance: ALBUTEROL SULFATE
  7. AMITRIPTYLINE [Concomitant]
     Active Substance: AMITRIPTYLINE
  8. BREO ELLIPTA [Concomitant]
     Active Substance: FLUTICASONE FUROATE\VILANTEROL TRIFENATATE
     Dosage: UNK
  9. DUPILUMAB [Concomitant]
     Active Substance: DUPILUMAB
  10. EPINEPHRINE [Concomitant]
     Active Substance: EPINEPHRINE
  11. GABAPENTIN [Concomitant]
     Active Substance: GABAPENTIN
  12. METHOCARBAMOL [Concomitant]
     Active Substance: METHOCARBAMOL
  13. ONDANSETRON [Concomitant]
     Active Substance: ONDANSETRON
  14. RIZATRIPTAN [Concomitant]
     Active Substance: RIZATRIPTAN
  15. ROSUVASTATIN [Concomitant]
     Active Substance: ROSUVASTATIN
  16. SUMATRIPTAN [Concomitant]
     Active Substance: SUMATRIPTAN
  17. ERENUMAB [Concomitant]
     Active Substance: ERENUMAB

REACTIONS (8)
  - Asthma [Not Recovered/Not Resolved]
  - Impaired quality of life [Not Recovered/Not Resolved]
  - No adverse event [Unknown]
  - Off label use [Unknown]
  - Ocular hyperaemia [Not Recovered/Not Resolved]
  - Eye irritation [Not Recovered/Not Resolved]
  - No adverse event [Unknown]
  - Product dose omission issue [Unknown]

NARRATIVE: CASE EVENT DATE: 20220101
